FAERS Safety Report 20444447 (Version 1)
Quarter: 2022Q1

REPORT INFORMATION
  Report Type: Spontaneous
  Country: US (occurrence: US)
  Receive Date: 20220208
  Receipt Date: 20220208
  Transmission Date: 20220423
  Serious: No
  Sender: FDA-Public Use
  Company Number: US-TAKEDA-2022TUS007254

PATIENT
  Sex: Male

DRUGS (2)
  1. VYVANSE [Suspect]
     Active Substance: LISDEXAMFETAMINE DIMESYLATE
     Indication: Attention deficit hyperactivity disorder
     Dosage: 50 MILLIGRAM, QD
     Route: 065
  2. VYVANSE [Suspect]
     Active Substance: LISDEXAMFETAMINE DIMESYLATE
     Dosage: 20 MILLIGRAM, QD
     Route: 065

REACTIONS (8)
  - Therapeutic product effect incomplete [Unknown]
  - Asthenia [Unknown]
  - Emotional disorder [Unknown]
  - Feeling abnormal [Unknown]
  - Disturbance in attention [Unknown]
  - Somnolence [Unknown]
  - Headache [Unknown]
  - Product physical issue [Unknown]
